FAERS Safety Report 6660475-4 (Version None)
Quarter: 2010Q1

REPORT INFORMATION
  Report Type: 
  Country: None (occurrence: None)
  Receive Date: 20100331
  Receipt Date: 20100301
  Transmission Date: 20100710
  Serious: No
  Sender: FDA-Public Use
  Company Number: US-BAYER-201012587BCC

PATIENT
  Age: 35 Year
  Sex: Male
  Weight: 75 kg

DRUGS (1)
  1. ALEVE (CAPLET) [Suspect]
     Indication: BACK PAIN
     Dosage: TOTAL DAILY DOSE: 880 MG  UNIT DOSE: 220 MG
     Route: 048
     Dates: start: 20100226

REACTIONS (7)
  - DIZZINESS [None]
  - FATIGUE [None]
  - LACRIMATION INCREASED [None]
  - MIGRAINE [None]
  - NAUSEA [None]
  - SOMNOLENCE [None]
  - VISUAL IMPAIRMENT [None]
